FAERS Safety Report 10672199 (Version 4)
Quarter: 2015Q1

REPORT INFORMATION
  Report Type: Spontaneous
  Country: US (occurrence: US)
  Receive Date: 20141223
  Receipt Date: 20150226
  Transmission Date: 20150720
  Serious: Yes (Hospitalization, Disabling, Other)
  Sender: FDA-Public Use
  Company Number: US-009507513-1204USA03765

PATIENT
  Sex: Male
  Weight: 98.87 kg

DRUGS (1)
  1. PROPECIA [Suspect]
     Active Substance: FINASTERIDE
     Indication: ALOPECIA
     Dosage: 1 MG, UNK
     Route: 048
     Dates: start: 1999, end: 20070606

REACTIONS (19)
  - Sexual dysfunction [Not Recovered/Not Resolved]
  - Depression [Not Recovered/Not Resolved]
  - Large intestine polyp [Unknown]
  - Squamous cell carcinoma [Unknown]
  - Orchidectomy [Unknown]
  - Cholelithiasis [Unknown]
  - Anxiety [Not Recovered/Not Resolved]
  - Cognitive disorder [Not Recovered/Not Resolved]
  - Ejaculation failure [Not Recovered/Not Resolved]
  - Erectile dysfunction [Not Recovered/Not Resolved]
  - Hepatomegaly [Unknown]
  - Gastric ulcer [Unknown]
  - Ejaculation disorder [Not Recovered/Not Resolved]
  - Libido decreased [Not Recovered/Not Resolved]
  - Epididymal cyst [Unknown]
  - Cataract operation [Unknown]
  - Blood triglycerides increased [Unknown]
  - Seminoma [Unknown]
  - Cataract operation [Unknown]

NARRATIVE: CASE EVENT DATE: 2003
